FAERS Safety Report 5846037-7 (Version None)
Quarter: 2008Q3

REPORT INFORMATION
  Report Type: 
  Country: None (occurrence: None)
  Receive Date: 20080814
  Receipt Date: 20080802
  Transmission Date: 20090109
  Serious: Yes (Other)
  Sender: FDA-Public Use
  Company Number: US-PFIZER INC-2008045778

PATIENT
  Sex: Male
  Weight: 102.1 kg

DRUGS (11)
  1. CHANTIX [Suspect]
     Indication: SMOKING CESSATION THERAPY
     Route: 048
  2. VICODIN [Suspect]
     Indication: MUSCULOSKELETAL PAIN
  3. LISINOPRIL [Concomitant]
  4. TOPROL-XL [Concomitant]
  5. NORVASC [Concomitant]
  6. PROTONIX [Concomitant]
  7. PLAVIX [Concomitant]
  8. ACETYLSALICYLIC ACID SRT [Concomitant]
  9. LIPITOR [Concomitant]
  10. PAXIL [Concomitant]
  11. TOPROL-XL [Concomitant]

REACTIONS (5)
  - DIZZINESS [None]
  - MOTION SICKNESS [None]
  - MUSCULOSKELETAL PAIN [None]
  - ROAD TRAFFIC ACCIDENT [None]
  - VERTIGO [None]
